FAERS Safety Report 7765921-0 (Version None)
Quarter: 2011Q3

REPORT INFORMATION
  Report Type: 
  Country: None (occurrence: None)
  Receive Date: 20110921
  Receipt Date: 20110916
  Transmission Date: 20111222
  Serious: Yes (Other)
  Sender: FDA-Public Use
  Company Number: US-AMGEN-USASP2011048263

PATIENT
  Sex: Female
  Weight: 91.61 kg

DRUGS (1)
  1. NPLATE [Suspect]
     Indication: MYELODYSPLASTIC SYNDROME
     Dosage: 3 MUG/KG, UNK
     Dates: start: 20110722

REACTIONS (6)
  - HEADACHE [None]
  - BACK PAIN [None]
  - FATIGUE [None]
  - DYSPNOEA [None]
  - VASCULAR ACCESS COMPLICATION [None]
  - CONTUSION [None]
